FAERS Safety Report 22269796 (Version 2)
Quarter: 2025Q3

REPORT INFORMATION
  Report Type: Spontaneous
  Country: JP (occurrence: JP)
  Receive Date: 20230501
  Receipt Date: 20250805
  Transmission Date: 20251021
  Serious: Yes (Death, Life-Threatening, Hospitalization, Other)
  Sender: ALEXION PHARMACEUTICALS
  Company Number: 2023A084763

PATIENT
  Age: 64 Year
  Sex: Male

DRUGS (12)
  1. IMFINZI [Suspect]
     Active Substance: DURVALUMAB
     Indication: Small cell lung cancer
     Dosage: DOSE UNKNOWN
     Dates: start: 20230315, end: 20230315
  2. CARBOPLATIN [Concomitant]
     Active Substance: CARBOPLATIN
     Indication: Small cell lung cancer
     Dates: start: 20230315, end: 20230315
  3. ETOPOSIDE [Concomitant]
     Active Substance: ETOPOSIDE
     Indication: Small cell lung cancer
  4. DEXTROMETHORPHAN HYDROBROMIDE [Concomitant]
     Active Substance: DEXTROMETHORPHAN HYDROBROMIDE
     Dates: start: 20230221, end: 20230404
  5. ACETAMINOPHEN [Concomitant]
     Active Substance: ACETAMINOPHEN
     Dates: start: 20230224, end: 20230404
  6. MAGNESIUM OXIDE [Concomitant]
     Active Substance: MAGNESIUM OXIDE
     Dates: start: 20230224, end: 20230404
  7. DIHYDROCODEINE PHOSPHATE [Concomitant]
     Active Substance: DIHYDROCODEINE PHOSPHATE
     Dates: start: 20230224, end: 20230404
  8. VONOPRAZAN FUMARATE [Concomitant]
     Active Substance: VONOPRAZAN FUMARATE
     Dosage: 10 MILLIGRAM, QD
     Dates: start: 20230227, end: 20230404
  9. PRIMPERAN [Concomitant]
     Active Substance: METOCLOPRAMIDE HYDROCHLORIDE
     Dates: start: 20230227, end: 20230331
  10. CARBOCYSTEINE [Concomitant]
     Active Substance: CARBOCYSTEINE
     Dates: start: 20230303, end: 20230404
  11. PIPERACILLIN SODIUM\TAZOBACTAM SODIUM [Concomitant]
     Active Substance: PIPERACILLIN SODIUM\TAZOBACTAM SODIUM
     Dates: start: 20230327, end: 20230407
  12. FILGRASTIM [Concomitant]
     Active Substance: FILGRASTIM

REACTIONS (12)
  - Immune-mediated pericarditis [Not Recovered/Not Resolved]
  - Renal failure [Not Recovered/Not Resolved]
  - Hepatic failure [Not Recovered/Not Resolved]
  - Myositis [Not Recovered/Not Resolved]
  - Immune-mediated myocarditis [Not Recovered/Not Resolved]
  - Blood pressure decreased [Unknown]
  - Metabolic acidosis [Unknown]
  - Eastern Cooperative Oncology Group performance status worsened [Unknown]
  - Death [Fatal]
  - Blood creatine phosphokinase increased [Recovering/Resolving]
  - Ventricular hypokinesia [Unknown]
  - Atrial fibrillation [Unknown]

NARRATIVE: CASE EVENT DATE: 20230404
